FAERS Safety Report 15833695 (Version 2)
Quarter: 2019Q1

REPORT INFORMATION
  Report Type: Spontaneous
  Country: JP (occurrence: JP)
  Receive Date: 20190116
  Receipt Date: 20190214
  Transmission Date: 20190417
  Serious: Yes (Life-Threatening, Other)
  Sender: FDA-Public Use
  Company Number: IND-JP-009507513-1812JPN000994J

PATIENT
  Age: 84 Year
  Sex: Male
  Weight: 65 kg

DRUGS (9)
  1. PROPOFOL. [Concomitant]
     Active Substance: PROPOFOL
     Indication: SURGERY
     Dosage: 90 MILLIGRAM, UNKNOWN
     Route: 042
     Dates: start: 20180206, end: 20180206
  2. CEFMETAZOLE [Concomitant]
     Active Substance: CEFMETAZOLE
     Indication: SURGERY
     Dosage: 1 GRAM, UNKNOWN
     Route: 042
     Dates: start: 20180206, end: 20180206
  3. BRIDION [Concomitant]
     Active Substance: SUGAMMADEX
     Indication: NEUROMUSCULAR BLOCKING THERAPY
     Dosage: 200 MILLIGRAM, UNKNOWN
     Route: 042
     Dates: start: 20180206, end: 20180206
  4. EPHEDRIN [Concomitant]
     Active Substance: EPHEDRINE HYDROCHLORIDE
     Indication: SURGERY
     Dosage: 36 MILLIGRAM, UNKNOWN
     Route: 042
     Dates: start: 20180206, end: 20180206
  5. ULTIVA [Concomitant]
     Active Substance: REMIFENTANIL HYDROCHLORIDE
     Indication: SURGERY
     Dosage: 1.42 MILLIGRAM, UNKNOWN
     Route: 042
     Dates: start: 20180206, end: 20180206
  6. HUMULIN R [Concomitant]
     Active Substance: INSULIN HUMAN
     Indication: SURGERY
     Dosage: 7 DOSAGE FORM, UNKNOWN
     Route: 042
     Dates: start: 20180206, end: 20180206
  7. ESLAX INTRAVENOUS 25MG/2.5ML [Suspect]
     Active Substance: ROCURONIUM BROMIDE
     Indication: NEUROMUSCULAR BLOCKING THERAPY
     Dosage: 100 MILLIGRAM, UNKNOWN
     Route: 042
     Dates: start: 20180206, end: 20180206
  8. DESFLURANE. [Suspect]
     Active Substance: DESFLURANE
     Indication: SURGERY
     Dosage: 162 MILLILITER, UNKNOWN
     Dates: start: 20180206, end: 20180206
  9. FENTANYL. [Concomitant]
     Active Substance: FENTANYL
     Indication: SURGERY
     Dosage: 50 MICROGRAM, UNKNOWN
     Route: 042
     Dates: start: 20180206, end: 20180206

REACTIONS (3)
  - Respiratory disorder [Recovered/Resolved]
  - Neuromuscular block prolonged [Unknown]
  - Respiratory arrest [Recovered/Resolved]

NARRATIVE: CASE EVENT DATE: 20180206
